FAERS Safety Report 7375569-8 (Version None)
Quarter: 2011Q1

REPORT INFORMATION
  Report Type: 
  Country: None (occurrence: None)
  Receive Date: 20110325
  Receipt Date: 20080407
  Transmission Date: 20110831
  Serious: Yes (Death, Hospitalization, Other)
  Sender: FDA-Public Use
  Company Number: US-BAYER-200826594NA

PATIENT
  Sex: Male
  Weight: 66 kg

DRUGS (10)
  1. ACETYLSALICYLIC ACID SRT [Concomitant]
  2. TRASYLOL [Suspect]
     Indication: AORTIC SURGERY
     Dosage: 200 ML, FOLLOWED BY 50 ML/HR
     Route: 042
     Dates: start: 20010603, end: 20010603
  3. LASIX [Concomitant]
  4. ZESTRIL [Concomitant]
  5. NITROGLYCERIN [Concomitant]
     Dosage: UNK
     Dates: start: 20010603, end: 20010603
  6. NORVASC [Concomitant]
  7. PLASMA [Concomitant]
     Dosage: 6 U, UNK
     Dates: start: 20010603
  8. RED BLOOD CELLS [Concomitant]
     Dosage: 6 U, UNK
     Dates: start: 20010603
  9. PLATELETS [Concomitant]
     Dosage: 10 U, UNK
     Dates: start: 20010603
  10. DDAVP [Concomitant]
     Dosage: UNK
     Dates: start: 20010603, end: 20010603

REACTIONS (10)
  - PAIN [None]
  - ADVERSE EVENT [None]
  - DEATH [None]
  - INJURY [None]
  - UNEVALUABLE EVENT [None]
  - DEPRESSION [None]
  - RENAL FAILURE [None]
  - ANXIETY [None]
  - FEAR [None]
  - ANHEDONIA [None]
